FAERS Safety Report 7008044-0 (Version None)
Quarter: 2010Q3

REPORT INFORMATION
  Report Type: 
  Country: None (occurrence: None)
  Receive Date: 20100922
  Receipt Date: 20100914
  Transmission Date: 20110219
  Serious: Yes (Death)
  Sender: FDA-Public Use
  Company Number: GR-ABBOTT-05P-066-0298167-00

PATIENT
  Sex: Male
  Weight: 71 kg

DRUGS (3)
  1. HUMIRA [Suspect]
     Indication: RHEUMATOID ARTHRITIS
     Route: 058
     Dates: start: 20050204, end: 20050324
  2. T-MODURETIC [Concomitant]
     Indication: HYPERTENSION
     Dates: start: 20040201, end: 20050323
  3. COMMERIAL HUMIRA [Concomitant]
     Indication: RHEUMATOID ARTHRITIS
     Dates: start: 20031223

REACTIONS (5)
  - CARDIAC ARREST [None]
  - CHEST PAIN [None]
  - CORONARY ARTERY DISEASE [None]
  - HYPERHIDROSIS [None]
  - MYOCARDIAL INFARCTION [None]
